FAERS Safety Report 23484936 (Version 1)
Quarter: 2024Q1

REPORT INFORMATION
  Report Type: Spontaneous
  Country: ES (occurrence: ES)
  Receive Date: 20240206
  Receipt Date: 20240206
  Transmission Date: 20240410
  Serious: Yes (Hospitalization)
  Sender: FDA-Public Use
  Company Number: None

PATIENT
  Age: 58 Year
  Sex: Female

DRUGS (2)
  1. CORTIZONE 10 EASY RELIEF [Suspect]
     Active Substance: HYDROCORTISONE
     Indication: Adrenal insufficiency
     Dosage: 50 MG, QD
     Route: 042
     Dates: start: 20231205
  2. TREMFYA [Suspect]
     Active Substance: GUSELKUMAB
     Indication: Rheumatoid arthritis
     Dosage: 100 MG, Q8W
     Route: 058
     Dates: start: 20230417

REACTIONS (1)
  - COVID-19 [Recovered/Resolved]
